FAERS Safety Report 8876057 (Version 1)
Quarter: 2012Q4

REPORT INFORMATION
  Report Type: 
  Country: US (occurrence: US)
  Receive Date: 20121023
  Receipt Date: 20121023
  Transmission Date: 20130627
  Serious: No
  Sender: FDA-Public Use
  Company Number: US-VERTEX PHARMACEUTICAL INC.-2012-023313

PATIENT
  Age: 55 Year
  Sex: Male

DRUGS (4)
  1. INCIVEK [Suspect]
     Indication: HEPATITIS C
     Dosage: 750 mg, tid
     Route: 048
     Dates: start: 20120928
  2. RIBAVIRIN [Suspect]
     Indication: HEPATITIS C
     Dosage: 600 mg am, 400 mg pm
     Route: 048
     Dates: start: 20120928
  3. PEGASYS [Suspect]
     Indication: HEPATITIS C
     Dosage: 180 ?g, UNK
     Route: 058
     Dates: start: 20120928
  4. TAMSULOSIN [Concomitant]
     Dosage: 2.5 %, UNK

REACTIONS (3)
  - Dysuria [Recovered/Resolved]
  - Anorectal discomfort [Recovered/Resolved]
  - Haemorrhoids [Recovered/Resolved]
